FAERS Safety Report 23513032 (Version 1)
Quarter: 2024Q1

REPORT INFORMATION
  Report Type: Spontaneous
  Country: US (occurrence: None)
  Receive Date: 20240209
  Receipt Date: 20240209
  Transmission Date: 20240410
  Serious: No
  Sender: FDA-Public Use
  Company Number: None

PATIENT
  Age: 5 Year
  Sex: Male
  Weight: 18.45 kg

DRUGS (1)
  1. AZITHROMYCIN [Suspect]
     Active Substance: AZITHROMYCIN
     Indication: Pharyngitis streptococcal
     Dosage: FREQUENCY : DAILY;?
     Route: 048
     Dates: start: 20231031, end: 20231104

REACTIONS (3)
  - Drug hypersensitivity [None]
  - Fall [None]
  - Immunosuppression [None]

NARRATIVE: CASE EVENT DATE: 20231101
